FAERS Safety Report 12923365 (Version 1)
Quarter: 2016Q4

REPORT INFORMATION
  Report Type: Spontaneous
  Country: US (occurrence: US)
  Receive Date: 20161109
  Receipt Date: 20161109
  Transmission Date: 20170207
  Serious: No
  Sender: FDA-Public Use
  Company Number: US-CELGENEUS-USA-2016102307

PATIENT
  Age: 75 Year
  Sex: Female
  Weight: 82.22 kg

DRUGS (2)
  1. DEXAMETHASONE. [Concomitant]
     Active Substance: DEXAMETHASONE
     Indication: PLASMA CELL MYELOMA
     Route: 048
     Dates: start: 20150728, end: 20160426
  2. REVLIMID [Suspect]
     Active Substance: LENALIDOMIDE
     Indication: PLASMA CELL MYELOMA
     Dosage: 25 MILLIGRAM
     Route: 048
     Dates: start: 20150728, end: 20160510

REACTIONS (6)
  - Dry skin [Recovered/Resolved]
  - Malaise [Recovered/Resolved]
  - Joint swelling [Recovered/Resolved]
  - Skin discolouration [Recovered/Resolved]
  - Arthralgia [Recovered/Resolved]
  - Fungal skin infection [Recovered/Resolved]

NARRATIVE: CASE EVENT DATE: 20160315
